FAERS Safety Report 5083589-1 (Version None)
Quarter: 2006Q3

REPORT INFORMATION
  Report Type: 
  Country: None (occurrence: None)
  Receive Date: 20060818
  Receipt Date: 20060627
  Transmission Date: 20061208
  Serious: Yes (Hospitalization)
  Sender: FDA-Public Use
  Company Number: JP-JPN-A200602312

PATIENT
  Age: 94 Year
  Sex: Male
  Weight: 43 kg

DRUGS (11)
  1. VALTREX [Suspect]
     Indication: HERPES ZOSTER
     Dosage: 1000MG THREE TIMES PER DAY
     Route: 048
     Dates: start: 20060624, end: 20060626
  2. MUCOSTA [Concomitant]
     Indication: GASTRITIS
     Dosage: 300MG PER DAY
     Route: 048
     Dates: start: 20060624, end: 20060626
  3. LOXOPROFEN [Concomitant]
     Indication: NEURALGIA
     Dosage: 182MG PER DAY
     Route: 048
  4. VIDARABINE [Concomitant]
     Indication: HERPES ZOSTER
     Route: 061
     Dates: start: 20060624, end: 20060626
  5. DIGOSIN [Concomitant]
     Indication: CARDIAC FAILURE
     Dosage: .063MG PER DAY
     Route: 048
     Dates: start: 19981125
  6. TORSEMIDE [Concomitant]
     Indication: CARDIAC FAILURE
     Dosage: 4MG PER DAY
     Route: 048
     Dates: start: 20060518
  7. SENNOSIDE [Concomitant]
     Indication: CONSTIPATION
     Route: 048
  8. PROCYLIN [Concomitant]
     Dosage: 40MG PER DAY
     Route: 048
     Dates: start: 20060315
  9. SUCRALFATE [Concomitant]
     Dates: start: 20060624
  10. UNKNOWN [Concomitant]
     Indication: HERPES ZOSTER
     Route: 061
     Dates: start: 20060624, end: 20060626
  11. CIMETIDINE [Concomitant]
     Indication: GASTRITIS
     Dosage: 400MG UNKNOWN
     Route: 048
     Dates: start: 20050316

REACTIONS (7)
  - ANOREXIA [None]
  - ANURIA [None]
  - DECREASED APPETITE [None]
  - EATING DISORDER [None]
  - SOMNOLENCE [None]
  - UNRESPONSIVE TO STIMULI [None]
  - URINARY RETENTION [None]
